FAERS Safety Report 23778890 (Version 1)
Quarter: 2024Q2

REPORT INFORMATION
  Report Type: Spontaneous
  Country: GR (occurrence: GR)
  Receive Date: 20240424
  Receipt Date: 20240424
  Transmission Date: 20240716
  Serious: Yes (Other)
  Sender: FDA-Public Use
  Company Number: GR-AMGEN-GRCSP2023109264

PATIENT
  Age: 73 Year
  Sex: Female

DRUGS (2)
  1. REPATHA [Suspect]
     Active Substance: EVOLOCUMAB
     Indication: Product used for unknown indication
     Dosage: UNK
     Route: 065
     Dates: start: 20181025
  2. EZETIMIBE [Concomitant]
     Active Substance: EZETIMIBE
     Dosage: 10MG FOR OVER 1.5 MONTH
     Route: 065

REACTIONS (2)
  - Myalgia [Not Recovered/Not Resolved]
  - Myopathy [Not Recovered/Not Resolved]
